FAERS Safety Report 6011467-X (Version None)
Quarter: 2008Q4

REPORT INFORMATION
  Report Type: 
  Country: None (occurrence: None)
  Receive Date: 20081218
  Receipt Date: 20071204
  Transmission Date: 20090506
  Serious: No
  Sender: FDA-Public Use
  Company Number: US-ABBOTT-07P-163-0427604-00

PATIENT
  Sex: Female
  Weight: 74.456 kg

DRUGS (1)
  1. MERIDIA [Suspect]
     Indication: WEIGHT CONTROL
     Route: 048
     Dates: start: 20070401, end: 20071204

REACTIONS (4)
  - FLATULENCE [None]
  - HAEMATOCHEZIA [None]
  - INSOMNIA [None]
  - OEDEMA PERIPHERAL [None]
